FAERS Safety Report 12892326 (Version 1)
Quarter: 2016Q4

REPORT INFORMATION
  Report Type: Spontaneous
  Country: NL (occurrence: NL)
  Receive Date: 20161028
  Receipt Date: 20161028
  Transmission Date: 20170207
  Serious: Yes (Other)
  Sender: FDA-Public Use
  Company Number: PHHY2016NL147884

PATIENT
  Sex: Female

DRUGS (1)
  1. FORADIL [Suspect]
     Active Substance: FORMOTEROL FUMARATE
     Indication: PRODUCT USED FOR UNKNOWN INDICATION
     Route: 055

REACTIONS (7)
  - Throat tightness [Unknown]
  - Pulmonary radiation injury [Unknown]
  - Aphonia [Unknown]
  - Wrong technique in product usage process [Unknown]
  - Palpitations [Unknown]
  - Drug hypersensitivity [Unknown]
  - Tremor [Unknown]
